FAERS Safety Report 11335752 (Version 4)
Quarter: 2016Q1

REPORT INFORMATION
  Report Type: Spontaneous
  Country: US (occurrence: US)
  Receive Date: 20150804
  Receipt Date: 20160119
  Transmission Date: 20160525
  Serious: Yes (Death)
  Sender: FDA-Public Use
  Company Number: US-JNJFOC-20150719683

PATIENT
  Age: 45 Year
  Sex: Male

DRUGS (4)
  1. RISPERDAL [Suspect]
     Active Substance: RISPERIDONE
     Indication: SCHIZOPHRENIA
     Route: 048
  2. CELEXA [Concomitant]
     Active Substance: CITALOPRAM HYDROBROMIDE
     Route: 065
  3. COGENTIN [Concomitant]
     Active Substance: BENZTROPINE MESYLATE
     Route: 065
  4. RISPERDAL CONSTA [Suspect]
     Active Substance: RISPERIDONE
     Indication: SCHIZOPHRENIA
     Route: 030

REACTIONS (5)
  - Fatigue [Unknown]
  - Cardiomegaly [Fatal]
  - Death [Fatal]
  - Pulmonary oedema [Fatal]
  - Stress [Unknown]

NARRATIVE: CASE EVENT DATE: 2015
